FAERS Safety Report 5350444-9 (Version None)
Quarter: 2007Q2

REPORT INFORMATION
  Report Type: 
  Country: None (occurrence: None)
  Receive Date: 20070608
  Receipt Date: 20070604
  Transmission Date: 20071010
  Serious: No
  Sender: FDA-Public Use
  Company Number: PHEH2007US07847

PATIENT
  Age: 54 Year
  Sex: Female
  Weight: 95.056 kg

DRUGS (13)
  1. TEKTURNA [Suspect]
     Indication: HYPERTENSION
     Dosage: 150 MG, QD
     Route: 048
     Dates: start: 20070410, end: 20070410
  2. SYNTHROID [Concomitant]
     Dosage: 200, QD
     Route: 048
  3. PREMARIN /SCH/ [Concomitant]
     Dosage: 1.25 MG, QD
     Route: 048
  4. AVALIDE [Concomitant]
     Dosage: ^300-12.5^, QD
     Route: 048
  5. EFFEXOR [Concomitant]
     Dosage: 75 MG, QD
     Route: 048
  6. ATIVAN [Concomitant]
     Dosage: 1MG, UNK
  7. CALCIUM CITRATE [Concomitant]
     Dosage: ^2, BID^
     Route: 048
  8. LORTAB [Concomitant]
     Dosage: 10MG, UNK
  9. CIPROFLOXACIN HCL [Concomitant]
     Indication: URINARY TRACT INFECTION
     Dosage: 250 MG, QD, FOR 10 DAYS
     Route: 048
     Dates: start: 20070407
  10. LASIX [Concomitant]
     Dosage: 80 MG, BID
     Route: 048
  11. K-DUR 10 [Concomitant]
     Dosage: 20MG, 8 TABS QD
     Route: 048
  12. COREG [Concomitant]
     Dosage: 25 MG, QD
     Route: 048
  13. VOLTAREN [Concomitant]
     Dosage: 25 MG, BID
     Route: 048

REACTIONS (10)
  - ARTHRALGIA [None]
  - CHILLS [None]
  - DIARRHOEA [None]
  - DYSPNOEA [None]
  - EXTRASYSTOLES [None]
  - HEADACHE [None]
  - HEART RATE INCREASED [None]
  - MYALGIA [None]
  - NAUSEA [None]
  - PYREXIA [None]
